FAERS Safety Report 5799522-0 (Version None)
Quarter: 2008Q3

REPORT INFORMATION
  Report Type: 
  Country: None (occurrence: None)
  Receive Date: 20080703
  Receipt Date: 20080701
  Transmission Date: 20090109
  Serious: Yes (Other)
  Sender: FDA-Public Use
  Company Number: GB-TEVA-173668ISR

PATIENT
  Age: 35 Year
  Sex: Female

DRUGS (3)
  1. IBUPROFEN [Suspect]
     Dates: start: 20080622, end: 20080623
  2. ONDANSETRON [Suspect]
     Dates: start: 20080621, end: 20080623
  3. CYCLIZINE [Suspect]
     Dates: start: 20080621, end: 20080622

REACTIONS (5)
  - HYPOTENSION [None]
  - MUSCULAR WEAKNESS [None]
  - RASH ERYTHEMATOUS [None]
  - SENSATION OF HEAVINESS [None]
  - TACHYCARDIA [None]
